FAERS Safety Report 22265155 (Version 1)
Quarter: 2023Q2

REPORT INFORMATION
  Report Type: Spontaneous
  Country: US (occurrence: US)
  Receive Date: 20230428
  Receipt Date: 20230428
  Transmission Date: 20230722
  Serious: No
  Sender: FDA-Public Use
  Company Number: US-BIOGEN-2023BI01202084

PATIENT
  Sex: Female

DRUGS (2)
  1. TECFIDERA [Suspect]
     Active Substance: DIMETHYL FUMARATE
     Indication: Multiple sclerosis
     Dosage: TAKE 1 CAPSULE BY MOUTH TWICE A DAY
     Route: 050
  2. MY CHOICE TM [Concomitant]
     Active Substance: LEVONORGESTREL
     Route: 050

REACTIONS (2)
  - Product dose omission issue [Unknown]
  - Flushing [Unknown]
